FAERS Safety Report 10950984 (Version 2)
Quarter: 2015Q2

REPORT INFORMATION
  Report Type: Spontaneous
  Country: US (occurrence: US)
  Receive Date: 20150324
  Receipt Date: 20150403
  Transmission Date: 20150821
  Serious: Yes (Other)
  Sender: FDA-Public Use
  Company Number: US-PFIZER INC-2015098906

PATIENT
  Age: 28 Year
  Sex: Female

DRUGS (5)
  1. DILANTIN [Suspect]
     Active Substance: PHENYTOIN
     Indication: SEIZURE
     Dosage: 250 MG, UNK
     Route: 042
     Dates: start: 19570422
  2. DILANTIN [Suspect]
     Active Substance: PHENYTOIN
     Dosage: 250 MG, EVERY 4 HRS
     Route: 030
  3. DILANTIN [Suspect]
     Active Substance: PHENYTOIN
     Dosage: 250 MG, EVERY 4-6 HRS
  4. PHENOBARBITAL. [Concomitant]
     Active Substance: PHENOBARBITAL
     Indication: SEIZURE
     Dosage: 65 MG, UNK
     Route: 030
     Dates: start: 19570423, end: 195704
  5. PHENOBARBITAL. [Concomitant]
     Active Substance: PHENOBARBITAL
     Dosage: MAXIMUM 132 MG EVERY 4-6 HOURS
     Route: 030
     Dates: start: 1957

REACTIONS (1)
  - Cerebellar atrophy [Unknown]
